FAERS Safety Report 16589139 (Version 1)
Quarter: 2019Q3

REPORT INFORMATION
  Report Type: Spontaneous
  Country: CA (occurrence: CA)
  Receive Date: 20190718
  Receipt Date: 20190718
  Transmission Date: 20191004
  Serious: Yes (Other)
  Sender: FDA-Public Use
  Company Number: CA-TEVA-2019-CA-1077684

PATIENT
  Age: 19 Year
  Sex: Male
  Weight: 60 kg

DRUGS (4)
  1. ZOPICLONE [Concomitant]
     Active Substance: ZOPICLONE
  2. TEVA-VENLAFAXINE XR [Suspect]
     Active Substance: VENLAFAXINE HYDROCHLORIDE
     Indication: DEPRESSION
     Dosage: 75 MILLIGRAM DAILY;
     Route: 048
  3. PROFERRIN [Concomitant]
     Active Substance: IRON
  4. TEVA-VENLAFAXINE XR [Suspect]
     Active Substance: VENLAFAXINE HYDROCHLORIDE
     Dosage: 150 MILLIGRAM DAILY;
     Route: 048

REACTIONS (4)
  - Feeling hot [Recovered/Resolved]
  - Unresponsive to stimuli [Recovered/Resolved]
  - Malaise [Recovered/Resolved]
  - Muscle twitching [Recovered/Resolved]
